FAERS Safety Report 15966885 (Version 2)
Quarter: 2019Q1

REPORT INFORMATION
  Report Type: Spontaneous
  Country: US (occurrence: US)
  Receive Date: 20190215
  Receipt Date: 20190312
  Transmission Date: 20190418
  Serious: Yes (Hospitalization)
  Sender: FDA-Public Use
  Company Number: US-BAYER-2019-027082

PATIENT
  Age: 24 Year
  Sex: Female

DRUGS (2)
  1. UNITHROID [Concomitant]
     Active Substance: LEVOTHYROXINE SODIUM
     Indication: AUTOIMMUNE THYROIDITIS
  2. SKYLA [Suspect]
     Active Substance: LEVONORGESTREL
     Dosage: 14 MCG/24HR, CONT
     Route: 015
     Dates: start: 201812

REACTIONS (12)
  - Hypoaesthesia [None]
  - Autoscopy [None]
  - Unresponsive to stimuli [None]
  - Tremor [None]
  - Seizure [None]
  - Asthenia [None]
  - Bradyphrenia [None]
  - Fear [None]
  - Panic attack [None]
  - Dizziness [None]
  - Bradyphrenia [None]
  - Tremor [None]

NARRATIVE: CASE EVENT DATE: 20181208
